FAERS Safety Report 25237504 (Version 2)
Quarter: 2025Q2

REPORT INFORMATION
  Report Type: Spontaneous
  Country: US (occurrence: US)
  Receive Date: 20250425
  Receipt Date: 20250425
  Transmission Date: 20250717
  Serious: No
  Sender: BRISTOL-MYERS SQUIBB COMPANY
  Company Number: US-BRISTOL-MYERS SQUIBB COMPANY-2025-060571

PATIENT
  Age: 6 Decade
  Sex: Male

DRUGS (1)
  1. COBENFY [Suspect]
     Active Substance: TROSPIUM CHLORIDE\XANOMELINE
     Indication: Schizophrenia
     Dosage: DOSE: 50MG/20MG; FREQ: BID?STRENGTH-50MG/20MG
     Route: 048

REACTIONS (2)
  - Skin discolouration [Recovered/Resolved]
  - Hypophagia [Recovered/Resolved]
